FAERS Safety Report 6395668-7 (Version None)
Quarter: 2009Q4

REPORT INFORMATION
  Report Type: 
  Country: None (occurrence: None)
  Receive Date: 20091009
  Receipt Date: 20090928
  Transmission Date: 20100525
  Serious: Yes (Other)
  Sender: FDA-Public Use
  Company Number: PHHY2009AU41549

PATIENT
  Age: 60 Year
  Sex: Female

DRUGS (1)
  1. STALEVO 100 [Suspect]

REACTIONS (9)
  - DIARRHOEA [None]
  - DIZZINESS [None]
  - DRY MOUTH [None]
  - ECZEMA [None]
  - FATIGUE [None]
  - GAIT DISTURBANCE [None]
  - MUSCLE SPASMS [None]
  - NAUSEA [None]
  - VISION BLURRED [None]
